FAERS Safety Report 4972125-3 (Version None)
Quarter: 2006Q2

REPORT INFORMATION
  Report Type: 
  Country: None (occurrence: None)
  Receive Date: 20060413
  Receipt Date: 20060330
  Transmission Date: 20061013
  Serious: Yes (Hospitalization, Other)
  Sender: FDA-Public Use
  Company Number: PHEH2006US04275

PATIENT
  Sex: Female

DRUGS (21)
  1. ZOMETA [Suspect]
     Indication: METASTASES TO BONE
     Dosage: 4 MG, ONCE/SINGLE
     Dates: start: 20060330, end: 20060330
  2. MONOPRIL [Concomitant]
  3. AVANDIA [Concomitant]
  4. ATIVAN [Concomitant]
     Dosage: UNK, PRN
  5. STARLIX [Concomitant]
  6. TAXOL + CARBOPLATIN [Concomitant]
     Indication: BREAST CANCER METASTATIC
  7. NEULASTA [Concomitant]
  8. ARANESP [Concomitant]
  9. ARIMIDEX [Concomitant]
  10. VICODIN [Concomitant]
     Indication: PAIN
     Dosage: UNK, PRN EVERY 6 HOURS
     Route: 048
  11. VICODIN [Concomitant]
     Route: 048
  12. ROCEPHIN [Concomitant]
     Dosage: UNK, QD
  13. HEPARIN [Concomitant]
     Dosage: 1000 UT, PRN
  14. NORMAL SALINE [Concomitant]
     Dosage: 10 ML, PRN
  15. WARFARIN [Concomitant]
     Dosage: 1 MG, QD
     Route: 048
  16. CARVEDILOL [Concomitant]
     Dosage: 12.5 MG, QD
     Route: 048
  17. LASIX [Concomitant]
     Dosage: 40 MG, BID
     Route: 048
  18. ALLOPURINOL [Concomitant]
     Dosage: 300 MG, QD
     Route: 048
  19. DILTIAZEM [Concomitant]
     Dosage: 180 MG, QD
     Route: 048
  20. NEURONTIN [Concomitant]
     Dosage: 300 MG, TID
     Route: 048
  21. LIPITOR [Concomitant]
     Dosage: 20 MG, QD
     Route: 048

REACTIONS (33)
  - ACTIVATED PARTIAL THROMBOPLASTIN TIME PROLONGED [None]
  - ASTHENIA [None]
  - BLOOD ALKALINE PHOSPHATASE INCREASED [None]
  - BLOOD CHLORIDE INCREASED [None]
  - BLOOD CREATININE INCREASED [None]
  - BLOOD MAGNESIUM DECREASED [None]
  - BLOOD PARATHYROID HORMONE INCREASED [None]
  - BLOOD PHOSPHORUS DECREASED [None]
  - BLOOD POTASSIUM DECREASED [None]
  - BLOOD SODIUM DECREASED [None]
  - BLOOD UREA [None]
  - CARBON DIOXIDE ABNORMAL [None]
  - DEHYDRATION [None]
  - DIARRHOEA [None]
  - FATIGUE [None]
  - HAEMATOCRIT DECREASED [None]
  - HAEMOGLOBIN DECREASED [None]
  - HAEMOPTYSIS [None]
  - HYPOAESTHESIA [None]
  - HYPOCALCAEMIA [None]
  - HYPOGLYCAEMIA [None]
  - HYPOPROTHROMBINAEMIA [None]
  - HYPOTENSION [None]
  - PANCYTOPENIA [None]
  - PLATELET COUNT DECREASED [None]
  - PROTEIN TOTAL DECREASED [None]
  - PYREXIA [None]
  - RED BLOOD CELL COUNT DECREASED [None]
  - RED CELL DISTRIBUTION WIDTH ABNORMAL [None]
  - SEPSIS SYNDROME [None]
  - URINE ANALYSIS ABNORMAL [None]
  - VITAMIN D DEFICIENCY [None]
  - WHITE BLOOD CELL COUNT ABNORMAL [None]
